FAERS Safety Report 10334319 (Version 1)
Quarter: 2014Q3

REPORT INFORMATION
  Report Type: Report from Study
  Country: AR (occurrence: AR)
  Receive Date: 20140723
  Receipt Date: 20140723
  Transmission Date: 20150326
  Serious: Yes (Other)
  Sender: FDA-Public Use
  Company Number: PHHY2014AR088254

PATIENT
  Sex: Male

DRUGS (2)
  1. ONBREZ [Suspect]
     Active Substance: INDACATEROL
     Indication: CHRONIC OBSTRUCTIVE PULMONARY DISEASE
     Dosage: 150 UG, QD
     Route: 055
  2. FREVIA [Concomitant]
     Active Substance: BUDESONIDE\FORMOTEROL
     Dosage: UNK UKN, UNK

REACTIONS (7)
  - Influenza [Unknown]
  - Sudden hearing loss [Unknown]
  - Gait disturbance [Recovering/Resolving]
  - Pneumonitis [Unknown]
  - Ear infection [Unknown]
  - Arterial occlusive disease [Unknown]
  - Dyspnoea [Recovering/Resolving]

NARRATIVE: CASE EVENT DATE: 2009
